FAERS Safety Report 9928567 (Version 2)
Quarter: 2014Q1

REPORT INFORMATION
  Report Type: Spontaneous
  Country: US (occurrence: US)
  Receive Date: 20140227
  Receipt Date: 20140227
  Transmission Date: 20141002
  Serious: Yes (Disabling)
  Sender: FDA-Public Use
  Company Number: US-GE HEALTHCARE MEDICAL DIAGNOSTICS-OSCN-PR-0905S-0264

PATIENT
  Age: 75 Year
  Sex: Male

DRUGS (13)
  1. OMNISCAN [Suspect]
     Indication: RENAL CELL CARCINOMA
     Dates: start: 20041206, end: 20041206
  2. OMNISCAN [Suspect]
     Indication: BURNING SENSATION
     Dates: start: 20050323, end: 20050323
  3. OMNISCAN [Suspect]
     Indication: HYPOAESTHESIA
     Dates: start: 20050627, end: 20050627
  4. OMNISCAN [Suspect]
     Dates: start: 20051107, end: 20051107
  5. OMNISCAN [Suspect]
     Dates: start: 20051205, end: 20051205
  6. GADOLINIUM (UNSPECIFIED) [Suspect]
     Indication: RENAL CELL CARCINOMA
     Dates: start: 20031119, end: 20031119
  7. GADOLINIUM (UNSPECIFIED) [Suspect]
     Dates: start: 20040213, end: 20040213
  8. GADOLINIUM (UNSPECIFIED) [Suspect]
     Dates: start: 20040505, end: 20040505
  9. GADOLINIUM (UNSPECIFIED) [Suspect]
     Dates: start: 20040825, end: 20040825
  10. OPTIMARK [Suspect]
     Indication: PRODUCT USED FOR UNKNOWN INDICATION
     Dates: start: 20030812, end: 20030812
  11. RENAGEL [Concomitant]
  12. ELAVIL [Concomitant]
  13. REMERON [Concomitant]

REACTIONS (1)
  - Nephrogenic systemic fibrosis [Not Recovered/Not Resolved]
